FAERS Safety Report 5960276-6 (Version None)
Quarter: 2008Q4

REPORT INFORMATION
  Report Type: 
  Country: None (occurrence: None)
  Receive Date: 20081118
  Receipt Date: 20081118
  Transmission Date: 20090506
  Serious: Yes (Other)
  Sender: FDA-Public Use
  Company Number: None

PATIENT
  Age: 51 Year
  Sex: Female
  Weight: 52.1637 kg

DRUGS (1)
  1. LEVAQUIN [Suspect]
     Indication: PNEUMONIA
     Dosage: 750 MG IV DRIP
     Route: 041
     Dates: start: 20081107, end: 20081109

REACTIONS (14)
  - ANXIETY [None]
  - DEPRESSION [None]
  - DYSPNOEA [None]
  - EATING DISORDER [None]
  - FEELING ABNORMAL [None]
  - GASTROINTESTINAL DISORDER [None]
  - GLOSSODYNIA [None]
  - HEADACHE [None]
  - MUSCLE TWITCHING [None]
  - ORAL DISORDER [None]
  - OROPHARYNGEAL PAIN [None]
  - SWOLLEN TONGUE [None]
  - TONGUE DISORDER [None]
  - VOMITING [None]
